FAERS Safety Report 19577111 (Version 67)
Quarter: 2023Q4

REPORT INFORMATION
  Report Type: Spontaneous
  Country: GB (occurrence: GB)
  Receive Date: 20210719
  Receipt Date: 20231107
  Transmission Date: 20240110
  Serious: Yes (Hospitalization, Other)
  Sender: FDA-Public Use
  Company Number: GB-PFIZER INC-2019511224

PATIENT
  Age: 68 Year
  Sex: Female
  Weight: 92 kg

DRUGS (52)
  1. OMEPRAZOLE [Suspect]
     Active Substance: OMEPRAZOLE
     Indication: Abdominal discomfort
     Dosage: QH (480 MILLIGRAM DAILY; 20 MG, 2X/DAY)
  2. OMEPRAZOLE [Suspect]
     Active Substance: OMEPRAZOLE
     Dosage: 20 MG, 2X/DAY)
     Dates: start: 20100917
  3. OMEPRAZOLE [Suspect]
     Active Substance: OMEPRAZOLE
     Dates: start: 20100917
  4. OMEPRAZOLE [Suspect]
     Active Substance: OMEPRAZOLE
     Dates: start: 20100917
  5. OMEPRAZOLE [Suspect]
     Active Substance: OMEPRAZOLE
     Dosage: UNK
     Dates: start: 20200917
  6. CIPROFLOXACIN [Suspect]
     Active Substance: CIPROFLOXACIN
     Indication: Product used for unknown indication
     Dates: start: 20100917
  7. CIPROFLOXACIN [Suspect]
     Active Substance: CIPROFLOXACIN
  8. ENBREL [Suspect]
     Active Substance: ETANERCEPT
     Indication: Depression
     Dosage: (MYCLIN PEN),QW
     Dates: start: 20210917
  9. ENBREL [Suspect]
     Active Substance: ETANERCEPT
     Indication: Rheumatoid arthritis
     Dosage: (MYCLIN PEN),QW
     Dates: start: 20100917
  10. IRBESARTAN [Suspect]
     Active Substance: IRBESARTAN
     Indication: Abdominal discomfort
     Dates: start: 20100917
  11. IRBESARTAN [Suspect]
     Active Substance: IRBESARTAN
     Dates: start: 20100912
  12. METHOTREXATE SODIUM [Suspect]
     Active Substance: METHOTREXATE SODIUM
     Indication: Product used for unknown indication
     Dosage: QW
     Dates: start: 20100917
  13. METHOTREXATE SODIUM [Suspect]
     Active Substance: METHOTREXATE SODIUM
     Indication: Rheumatoid arthritis
     Dosage: QW
  14. PHYLLOCONTIN [Suspect]
     Active Substance: AMINOPHYLLINE
     Indication: Product used for unknown indication
     Dates: start: 20100917
  15. VENLAFAXINE HYDROCHLORIDE [Suspect]
     Active Substance: VENLAFAXINE HYDROCHLORIDE
     Indication: Rheumatoid arthritis
     Dosage: 20 MG, 2X/DAY
  16. VENLAFAXINE HYDROCHLORIDE [Suspect]
     Active Substance: VENLAFAXINE HYDROCHLORIDE
     Dosage: UNK (125 MG/ 5 ML)
  17. CARBAMAZEPINE [Suspect]
     Active Substance: CARBAMAZEPINE
     Indication: Product used for unknown indication
     Dates: start: 20200917
  18. CARBAMAZEPINE [Suspect]
     Active Substance: CARBAMAZEPINE
  19. GUANIDINE [Suspect]
     Active Substance: GUANIDINE
     Indication: Abdominal discomfort
     Dosage: 20 MG, QD
  20. GUANIDINE [Suspect]
     Active Substance: GUANIDINE
     Dosage: (1,3-DIPHENYLGUANIDINE)
  21. DITIOCARB ZINC [Suspect]
     Active Substance: DITIOCARB ZINC
     Indication: Depression
  22. DITIOCARB ZINC [Suspect]
     Active Substance: DITIOCARB ZINC
     Indication: Product used for unknown indication
  23. VENLAFAXINE [Suspect]
     Active Substance: VENLAFAXINE HYDROCHLORIDE
     Indication: Rheumatoid arthritis
  24. VENLAFAXINE [Suspect]
     Active Substance: VENLAFAXINE HYDROCHLORIDE
     Indication: Product used for unknown indication
  25. THEOPHYLLINE [Suspect]
     Active Substance: THEOPHYLLINE
     Indication: Depression
  26. AMINOPHYLLINE [Suspect]
     Active Substance: AMINOPHYLLINE
     Indication: Rheumatoid arthritis
     Dosage: MYCLIC PEN
     Dates: start: 20200917
  27. AMINOPHYLLINE [Suspect]
     Active Substance: AMINOPHYLLINE
     Indication: Abdominal discomfort
  28. AMINOPHYLLINE [Suspect]
     Active Substance: AMINOPHYLLINE
     Indication: Depression
  29. SULFAGUANIDINE [Suspect]
     Active Substance: SULFAGUANIDINE
     Indication: Rheumatoid arthritis
  30. CHARCOAL ACTIVATED [Suspect]
     Active Substance: ACTIVATED CHARCOAL
     Indication: Abdominal discomfort
  31. AMOXICILLIN [Suspect]
     Active Substance: AMOXICILLIN
     Indication: Rheumatoid arthritis
     Dosage: 125 MG/ 5 ML
     Dates: start: 20210904
  32. PROBIOTICS NOS [Suspect]
     Active Substance: PROBIOTICS NOS
     Indication: Abdominal discomfort
  33. BIFIDOBACTERIUM LONGUM [Suspect]
     Active Substance: BIFIDOBACTERIUM LONGUM
     Indication: Depression
  34. BIFIDOBACTERIUM LONGUM [Suspect]
     Active Substance: BIFIDOBACTERIUM LONGUM
     Dosage: 225 MG, DAILY (PROLONGED RELEASE)
  35. BIFIDOBACTERIUM LONGUM [Suspect]
     Active Substance: BIFIDOBACTERIUM LONGUM
  36. LACTOBACILLUS RHAMNOSUS [Suspect]
     Active Substance: LACTOBACILLUS RHAMNOSUS
     Indication: Product used for unknown indication
  37. LACTOBACILLUS RHAMNOSUS [Suspect]
     Active Substance: LACTOBACILLUS RHAMNOSUS
     Indication: Abdominal discomfort
  38. CARBOCYSTEINE [Suspect]
     Active Substance: CARBOCYSTEINE
     Indication: Abdominal discomfort
     Dates: start: 20120917
  39. CARBOCYSTEINE [Suspect]
     Active Substance: CARBOCYSTEINE
     Dosage: 40 MG, QD (20 MG, 2X/DAY)
     Dates: start: 20210917
  40. CARBOCYSTEINE [Suspect]
     Active Substance: CARBOCYSTEINE
     Dosage: 480 MILLIGRAM DAILY; 20 MG, 2X/DAY40 MG, QD (20 MG, 2X/DAY)
     Dates: start: 20100917
  41. BENDROFLUMETHIAZIDE [Concomitant]
     Active Substance: BENDROFLUMETHIAZIDE
     Indication: Pituitary tumour
  42. BENDROFLUMETHIAZIDE [Concomitant]
     Active Substance: BENDROFLUMETHIAZIDE
     Indication: Depression
  43. CABERGOLINE [Concomitant]
     Active Substance: CABERGOLINE
     Indication: Empty sella syndrome
  44. CABERGOLINE [Concomitant]
     Active Substance: CABERGOLINE
     Indication: Pituitary tumour
  45. CETIRIZINE [Concomitant]
     Active Substance: CETIRIZINE HYDROCHLORIDE
     Indication: Abdominal discomfort
  46. EZETIMIBE [Concomitant]
     Active Substance: EZETIMIBE
     Indication: Product used for unknown indication
  47. EZETIMIBE [Concomitant]
     Active Substance: EZETIMIBE
     Indication: Product used for unknown indication
  48. FOLIC ACID [Concomitant]
     Active Substance: FOLIC ACID
     Indication: Product used for unknown indication
  49. LEVOTHYROXINE [Concomitant]
     Active Substance: LEVOTHYROXINE
     Indication: Abdominal discomfort
  50. ORUVAIL [Concomitant]
     Active Substance: KETOPROFEN
     Indication: Empty sella syndrome
  51. CHARCOAL ACTIVATED [Concomitant]
     Active Substance: ACTIVATED CHARCOAL
     Indication: Product used for unknown indication
  52. THEOPHYLLINE [Concomitant]
     Active Substance: THEOPHYLLINE
     Indication: Depression

REACTIONS (13)
  - Lower respiratory tract infection [Not Recovered/Not Resolved]
  - Pulmonary pain [Unknown]
  - Knee arthroplasty [Unknown]
  - Amyloid arthropathy [Unknown]
  - Arthropathy [Unknown]
  - Obesity [Unknown]
  - Abdominal discomfort [Unknown]
  - Rash [Not Recovered/Not Resolved]
  - Product dose omission issue [Unknown]
  - Drug abuse [Unknown]
  - Intentional product misuse [Unknown]
  - Overdose [Unknown]
  - Off label use [Unknown]

NARRATIVE: CASE EVENT DATE: 20201001
